FAERS Safety Report 13451748 (Version 2)
Quarter: 2018Q1

REPORT INFORMATION
  Report Type: Spontaneous
  Country: US (occurrence: US)
  Receive Date: 20170418
  Receipt Date: 20180314
  Transmission Date: 20180508
  Serious: Yes (Other)
  Sender: FDA-Public Use
  Company Number: US-PFIZER INC-2017164413

PATIENT
  Age: 61 Year
  Sex: Female

DRUGS (3)
  1. NEURONTIN [Suspect]
     Active Substance: GABAPENTIN
     Indication: PAIN
     Dosage: 800 MG, 3X/DAY
     Dates: start: 2004
  2. NEURONTIN [Suspect]
     Active Substance: GABAPENTIN
     Dosage: 600 MG, UNK
  3. NEURONTIN [Suspect]
     Active Substance: GABAPENTIN
     Dosage: 800 MG, 3X/DAY

REACTIONS (5)
  - Insomnia [Not Recovered/Not Resolved]
  - Drug dependence [Unknown]
  - Product use issue [Unknown]
  - Drug ineffective [Unknown]
  - Intentional overdose [Unknown]

NARRATIVE: CASE EVENT DATE: 2004
